FAERS Safety Report 21144446 (Version 2)
Quarter: 2022Q3

REPORT INFORMATION
  Report Type: Report from Study
  Country: GR (occurrence: GR)
  Receive Date: 20220728
  Receipt Date: 20220909
  Transmission Date: 20221027
  Serious: Yes (Death, Life-Threatening, Hospitalization, Other)
  Sender: FDA-Public Use
  Company Number: GR-TAKEDA-2022TUS051011

PATIENT
  Age: 84 Year
  Sex: Male

DRUGS (16)
  1. HUMAN IMMUNOGLOBULIN G\HYALURONIDASE RECOMBINANT HUMAN [Suspect]
     Active Substance: HUMAN IMMUNOGLOBULIN G\HYALURONIDASE RECOMBINANT HUMAN
     Indication: Immunodeficiency
     Dosage: 30 MILLIGRAM, MONTHLY
     Route: 065
     Dates: start: 20180808, end: 20220325
  2. CRANBERRY [Concomitant]
     Active Substance: CRANBERRY
     Dosage: 36 MILLIGRAM, QD
  3. ALLOPURINOL [Concomitant]
     Active Substance: ALLOPURINOL
     Indication: Blood uric acid
     Dosage: 300 MILLIGRAM
  4. MAXARTAN [Concomitant]
     Indication: Blood pressure increased
     Dosage: UNK UNK, QD
     Dates: end: 202202
  5. ARIMIDEX [Concomitant]
     Active Substance: ANASTROZOLE
     Indication: Breast cancer
     Dosage: 1 MILLIGRAM, QD
  6. LEUPROL [Concomitant]
     Indication: Breast cancer
     Route: 030
  7. TARONTAL [Concomitant]
     Indication: Cardiovascular disorder
     Dosage: UNK UNK, QD
  8. JANUMET [Concomitant]
     Active Substance: METFORMIN HYDROCHLORIDE\SITAGLIPTIN PHOSPHATE
     Dosage: 50 MILLIGRAM, QD
  9. JANUMET [Concomitant]
     Active Substance: METFORMIN HYDROCHLORIDE\SITAGLIPTIN PHOSPHATE
     Dosage: 850 MILLIGRAM, QD
  10. FOLIC ACID [Concomitant]
     Active Substance: FOLIC ACID
     Indication: Blood iron
     Dosage: 5 MILLIGRAM, QD
  11. OMACOR [Concomitant]
     Active Substance: OMEGA-3-ACID ETHYL ESTERS
     Indication: Blood triglycerides
     Dosage: 1000 MILLIGRAM, QD
  12. AVODART [Concomitant]
     Active Substance: DUTASTERIDE
     Indication: Prostate cancer
     Dosage: 0.5 MILLIGRAM, QD
  13. SILODOSIN [Concomitant]
     Active Substance: SILODOSIN
     Indication: Prostate cancer
  14. Fosfocin [Concomitant]
     Indication: Urinary tract infection
     Dosage: UNK
  15. AMLODIPINE BESYLATE\HYDROCHLOROTHIAZIDE\OLMESARTAN MEDOXOMIL [Concomitant]
     Active Substance: AMLODIPINE BESYLATE\HYDROCHLOROTHIAZIDE\OLMESARTAN MEDOXOMIL
     Dosage: UNK
     Dates: start: 202203
  16. AMLODIPINE [Concomitant]
     Active Substance: AMLODIPINE BESYLATE
     Indication: Blood pressure measurement
     Dosage: 10 MILLIGRAM
     Dates: start: 202203

REACTIONS (5)
  - Cardio-respiratory arrest [Fatal]
  - Acute kidney injury [Fatal]
  - Gastric haemorrhage [Fatal]
  - Pneumonia [Fatal]
  - COVID-19 [Fatal]

NARRATIVE: CASE EVENT DATE: 20211101
